FAERS Safety Report 25894958 (Version 1)
Quarter: 2025Q4

REPORT INFORMATION
  Report Type: Spontaneous
  Country: US (occurrence: US)
  Receive Date: 20251008
  Receipt Date: 20251008
  Transmission Date: 20260118
  Serious: Yes (Other)
  Sender: AMGEN
  Company Number: US-AMGEN-USASP2025198139

PATIENT
  Sex: Male

DRUGS (1)
  1. REPATHA [Suspect]
     Active Substance: EVOLOCUMAB
     Indication: Product used for unknown indication
     Dosage: UNK (140 MILLIGRAM)
     Route: 065

REACTIONS (5)
  - Arteriosclerosis coronary artery [Unknown]
  - Pulmonary mass [Unknown]
  - Gynaecomastia [Unknown]
  - Spinal disorder [Unknown]
  - Renal disorder [Unknown]
